FAERS Safety Report 17690777 (Version 2)
Quarter: 2020Q2

REPORT INFORMATION
  Report Type: Other
  Country: FR (occurrence: FR)
  Receive Date: 20200421
  Receipt Date: 20200427
  Transmission Date: 20200714
  Serious: Yes (Hospitalization)
  Sender: FDA-Public Use
  Company Number: FR-CELLTRION INC.-2019FR020458

PATIENT

DRUGS (6)
  1. TRASTUZUMAB (UNKNOWN) [Suspect]
     Active Substance: TRASTUZUMAB
     Indication: BREAST CANCER
     Dosage: UNK UNK, 1/WEEK
     Route: 041
     Dates: start: 20181130
  2. PACLITAXEL. [Suspect]
     Active Substance: PACLITAXEL
     Indication: BREAST CANCER
     Dosage: 144 MILLIGRAM, 1/WEEK
     Route: 041
     Dates: start: 20181130, end: 20190222
  3. SOLUPRED 20 MG, COMPRIME ORODISPERSIBLE [Suspect]
     Active Substance: PREDNISOLONE SODIUM METAZOATE
     Indication: PROPHYLAXIS OF NAUSEA AND VOMITING
     Dosage: 2 DF, 1/WEEK
     Route: 048
     Dates: start: 20181116, end: 20190222
  4. CAPECITABINE. [Suspect]
     Active Substance: CAPECITABINE
     Indication: BREAST CANCER
     Dosage: UNK
     Route: 048
     Dates: start: 20181130, end: 20190222
  5. RANITIDINE (CHLORHYDRATE DE) [Suspect]
     Active Substance: RANITIDINE HYDROCHLORIDE
     Indication: PREMEDICATION
     Dosage: 150 MILLIGRAM, 1/WEEK
     Route: 048
     Dates: start: 20181116, end: 20190222
  6. LEVOCETIRIZINE  (DICHLORHYDRATE DE) [Suspect]
     Active Substance: LEVOCETIRIZINE
     Indication: PREMEDICATION
     Dosage: 5 MILLIGRAM, 1/WEEK
     Route: 048
     Dates: start: 20181116, end: 20190222

REACTIONS (1)
  - Type 2 diabetes mellitus [Recovered/Resolved with Sequelae]

NARRATIVE: CASE EVENT DATE: 201903
